FAERS Safety Report 6212319-2 (Version None)
Quarter: 2009Q2

REPORT INFORMATION
  Report Type: 
  Country: None (occurrence: None)
  Receive Date: 20090529
  Receipt Date: 20090513
  Transmission Date: 20091009
  Serious: Yes (Life-Threatening, Hospitalization)
  Sender: FDA-Public Use
  Company Number: 8044170

PATIENT
  Age: 73 Year
  Sex: Female
  Weight: 75 kg

DRUGS (5)
  1. KEPPRA [Suspect]
     Dosage: 250 MG 2/D IV
     Route: 042
     Dates: start: 20090301
  2. PHENYTOIN [Suspect]
     Indication: STATUS EPILEPTICUS
     Dosage: 1000 MG /D IVI
     Dates: start: 20090308
  3. TAVOR [Concomitant]
  4. DORMICUM [Concomitant]
  5. AKRINOR [Concomitant]

REACTIONS (3)
  - ELECTROCARDIOGRAM QT PROLONGED [None]
  - TACHYCARDIA [None]
  - TORSADE DE POINTES [None]
